FAERS Safety Report 4384882-8 (Version None)
Quarter: 2004Q2

REPORT INFORMATION
  Report Type: 
  Country: None (occurrence: None)
  Receive Date: 20040625
  Receipt Date: 20020730
  Transmission Date: 20050107
  Serious: Yes (Death, Hospitalization, Other)
  Sender: FDA-Public Use
  Company Number: US-MERCK-0207USA02823

PATIENT
  Age: 77 Year
  Sex: Female
  Weight: 84 kg

DRUGS (5)
  1. TYLENOL W/ CODEINE NO. 4 [Concomitant]
     Indication: BACK PAIN
     Route: 065
  2. TYLENOL W/ CODEINE NO. 4 [Concomitant]
     Indication: ARTHRITIS
     Route: 065
  3. PREMARIN [Concomitant]
     Indication: MENOPAUSE
     Route: 065
  4. PROVERA [Concomitant]
     Indication: MENOPAUSE
     Route: 065
  5. VIOXX [Suspect]
     Route: 048

REACTIONS (16)
  - ANAEMIA [None]
  - ANOXIC ENCEPHALOPATHY [None]
  - CARDIO-RESPIRATORY ARREST [None]
  - CONVULSION [None]
  - CORONARY ARTERY DISEASE [None]
  - DEEP VEIN THROMBOSIS [None]
  - GASTRIC DISORDER [None]
  - HYPERTENSION [None]
  - HYPOKALAEMIA [None]
  - LUMBAR SPINAL STENOSIS [None]
  - MYOCARDIAL INFARCTION [None]
  - PNEUMONIA ASPIRATION [None]
  - POSTOPERATIVE ILEUS [None]
  - PULMONARY OEDEMA [None]
  - SHOCK [None]
  - SYPHILIS [None]
